FAERS Safety Report 5595914-3 (Version None)
Quarter: 2008Q1

REPORT INFORMATION
  Report Type: 
  Country: None (occurrence: None)
  Receive Date: 20080118
  Receipt Date: 20080108
  Transmission Date: 20080703
  Serious: Yes (Other)
  Sender: FDA-Public Use
  Company Number: JP-ASTRAZENECA-2007AP04239

PATIENT
  Age: 59 Year
  Sex: Male
  Weight: 59 kg

DRUGS (16)
  1. MEROPENEM [Suspect]
     Indication: SEPSIS
     Route: 042
     Dates: start: 20070502, end: 20070507
  2. AMBISOME [Suspect]
     Indication: SYSTEMIC MYCOSIS
     Route: 042
     Dates: start: 20070507, end: 20070511
  3. AMBISOME [Suspect]
     Route: 042
     Dates: start: 20070512, end: 20070514
  4. AMBISOME [Suspect]
     Route: 042
     Dates: start: 20070516, end: 20070528
  5. ITRIZOLE [Suspect]
     Indication: SYSTEMIC MYCOSIS
     Route: 042
     Dates: start: 20070405, end: 20070505
  6. MODACIN [Suspect]
     Indication: SEPSIS
     Route: 042
     Dates: start: 20070507, end: 20070514
  7. GAMIMUNE N 5% [Concomitant]
     Indication: IMMUNODEFICIENCY COMMON VARIABLE
     Route: 042
     Dates: end: 20070621
  8. OMEPRAL [Concomitant]
     Route: 042
     Dates: start: 20070509, end: 20070528
  9. OMEPRAL [Concomitant]
     Route: 042
     Dates: start: 20070529, end: 20070628
  10. PREDONINE [Concomitant]
     Indication: GRAFT VERSUS HOST DISEASE
     Route: 042
     Dates: start: 20070508, end: 20070511
  11. PREDONINE [Concomitant]
     Route: 042
     Dates: start: 20070512, end: 20070513
  12. HEPARIN SODIUM INJECTION [Concomitant]
     Dates: end: 20070522
  13. HUMAN PLATELET CONCENTRATE [Concomitant]
     Dates: end: 20070626
  14. FUNGUARD [Concomitant]
     Route: 042
     Dates: start: 20070506, end: 20070507
  15. FUNGUARD [Concomitant]
     Route: 042
     Dates: start: 20070515, end: 20070515
  16. FUNGUARD [Concomitant]
     Route: 042
     Dates: start: 20070606, end: 20070625

REACTIONS (2)
  - HEPATIC FUNCTION ABNORMAL [None]
  - RENAL IMPAIRMENT [None]
